FAERS Safety Report 15665801 (Version 1)
Quarter: 2018Q4

REPORT INFORMATION
  Report Type: Spontaneous
  Country: US (occurrence: US)
  Receive Date: 20181128
  Receipt Date: 20181128
  Transmission Date: 20190205
  Serious: Yes (Death, Hospitalization)
  Sender: FDA-Public Use
  Company Number: US-PERRIGO-18US013264

PATIENT
  Age: 34 Year
  Sex: Male

DRUGS (6)
  1. ETIZOLAM [Suspect]
     Active Substance: ETIZOLAM
     Indication: ACCIDENTAL OVERDOSE
     Dosage: UNK
     Route: 048
  2. LOPERAMIDE HYDROCHLORIDE. [Suspect]
     Active Substance: LOPERAMIDE HYDROCHLORIDE
     Dosage: 144 MG, SINGLE
     Route: 048
  3. LOPERAMIDE HYDROCHLORIDE. [Suspect]
     Active Substance: LOPERAMIDE HYDROCHLORIDE
     Indication: ACCIDENTAL OVERDOSE
     Dosage: 400 MG, SINGLE
     Route: 048
  4. GABAPENTIN. [Concomitant]
     Active Substance: GABAPENTIN
     Indication: PRODUCT USED FOR UNKNOWN INDICATION
     Dosage: UNK, UNK
     Route: 048
  5. LOPERAMIDE HYDROCHLORIDE. [Suspect]
     Active Substance: LOPERAMIDE HYDROCHLORIDE
     Dosage: UNK
     Route: 048
  6. CANNABIS [Concomitant]
     Active Substance: CANNABIS SATIVA SUBSP. INDICA TOP
     Indication: SUBSTANCE USE
     Dosage: UNK
     Route: 065

REACTIONS (5)
  - Atrioventricular block first degree [Recovered/Resolved]
  - Drug abuse [Fatal]
  - Accidental overdose [Fatal]
  - Depressed level of consciousness [Fatal]
  - Pulmonary congestion [Fatal]
